FAERS Safety Report 21159104 (Version 1)
Quarter: 2022Q3

REPORT INFORMATION
  Report Type: Report from Study
  Country: IT (occurrence: IT)
  Receive Date: 20220802
  Receipt Date: 20220802
  Transmission Date: 20221027
  Serious: Yes (Hospitalization)
  Sender: FDA-Public Use
  Company Number: IT-CELLTRION INC.-2022IT011905

PATIENT

DRUGS (3)
  1. RITUXIMAB [Suspect]
     Active Substance: RITUXIMAB
     Indication: Follicular lymphoma
     Dosage: 592.5 MILLIGRAM, CYCLIC
     Dates: start: 20220321, end: 20220321
  2. ETOPOSIDE [Suspect]
     Active Substance: ETOPOSIDE
     Indication: Follicular lymphoma
     Dosage: 79 MILLIGRAM, CYCLIC
     Route: 042
     Dates: start: 20220321, end: 20220324
  3. GRANISETRON [Concomitant]
     Active Substance: GRANISETRON

REACTIONS (5)
  - Mucosal inflammation [Recovered/Resolved]
  - Dysphagia [Recovered/Resolved]
  - Oral candidiasis [Recovered/Resolved]
  - Asthenia [Recovered/Resolved]
  - Underdose [Unknown]

NARRATIVE: CASE EVENT DATE: 20220401
